FAERS Safety Report 6427939-X (Version None)
Quarter: 2009Q4

REPORT INFORMATION
  Report Type: 
  Country: None (occurrence: None)
  Receive Date: 20091105
  Receipt Date: 20091022
  Transmission Date: 20100525
  Serious: Yes (Other)
  Sender: FDA-Public Use
  Company Number: PHHY2009JP46369

PATIENT
  Age: 74 Year
  Sex: Female

DRUGS (3)
  1. VOLTAREN [Suspect]
     Indication: ANALGESIC THERAPY
     Route: 054
  2. LOXOPROFEN [Concomitant]
     Indication: ANALGESIC THERAPY
  3. DICLOFENAC SODIUM [Concomitant]
     Indication: ANALGESIC THERAPY
     Route: 048

REACTIONS (2)
  - DISSEMINATED INTRAVASCULAR COAGULATION [None]
  - PLATELET COUNT DECREASED [None]
